FAERS Safety Report 6973231-4 (Version None)
Quarter: 2010Q3

REPORT INFORMATION
  Report Type: 
  Country: None (occurrence: None)
  Receive Date: 20100909
  Receipt Date: 20100908
  Transmission Date: 20110219
  Serious: Yes (Hospitalization, Other)
  Sender: FDA-Public Use
  Company Number: AU-ROXANE LABORATORIES, INC.-2010-RO-01191RO

PATIENT
  Age: 31 Year
  Sex: Female

DRUGS (4)
  1. LITHIUM CARBONATE [Suspect]
     Indication: MANIA
  2. RISPERIDONE [Suspect]
  3. QUETIAPINE [Suspect]
     Indication: MANIA
     Dosage: 600 MG
  4. AMISULPRIDE [Suspect]
     Indication: MANIA

REACTIONS (2)
  - ELECTROCARDIOGRAM QT PROLONGED [None]
  - NEUROLEPTIC MALIGNANT SYNDROME [None]
